FAERS Safety Report 4710365-9 (Version None)
Quarter: 2005Q3

REPORT INFORMATION
  Report Type: 
  Country: None (occurrence: None)
  Receive Date: 20050707
  Receipt Date: 20050628
  Transmission Date: 20060218
  Serious: Yes (Death, Other)
  Sender: FDA-Public Use
  Company Number: 2005-06-2060

PATIENT
  Age: 68 Year
  Sex: Male

DRUGS (11)
  1. PEG-INTRON [Suspect]
     Indication: HEPATITIS C
     Dosage: 80 MCG QW SUBCUTANEOUS
     Route: 058
     Dates: start: 20050422, end: 20050617
  2. REBETOL [Suspect]
     Indication: HEPATITIS C
     Dosage: 600 MG ORAL
     Route: 048
     Dates: start: 20050422, end: 20050620
  3. DIOVAN TABLETS [Concomitant]
  4. METFORMIN HCL [Concomitant]
  5. AZELNIDIPINE TABLETS [Concomitant]
  6. LANSOPRAZOLE TABLETS [Concomitant]
  7. URSO TABLETS [Concomitant]
  8. ZOLPIDEM TABLETS [Concomitant]
  9. ROHYPNOL TABLETS [Concomitant]
  10. ETHYL LOFLAZEPATE TABLETS [Concomitant]
  11. DOGMATYL TABLETS [Concomitant]

REACTIONS (3)
  - CARDIOVASCULAR DISORDER [None]
  - DEPRESSION [None]
  - INSOMNIA [None]
